FAERS Safety Report 15876521 (Version 5)
Quarter: 2020Q1

REPORT INFORMATION
  Report Type: Report from Study
  Country: None (occurrence: CA)
  Receive Date: 20190127
  Receipt Date: 20200321
  Transmission Date: 20200409
  Serious: Yes (Other)
  Sender: FDA-Public Use
  Company Number: CA-ABBVIE-18K-028-2500994-00

PATIENT
  Sex: Female

DRUGS (3)
  1. HUMIRA [Suspect]
     Active Substance: ADALIMUMAB
     Route: 058
  2. HUMIRA [Suspect]
     Active Substance: ADALIMUMAB
     Dosage: RE-INDUCTION DOSE
     Route: 058
     Dates: start: 20190224, end: 20190224
  3. HUMIRA [Suspect]
     Active Substance: ADALIMUMAB
     Indication: CROHN^S DISEASE
     Route: 058
     Dates: start: 20180912

REACTIONS (18)
  - Premature baby [Unknown]
  - Maternal exposure during pregnancy [Unknown]
  - Constipation [Not Recovered/Not Resolved]
  - Ocular hyperaemia [Not Recovered/Not Resolved]
  - Crohn^s disease [Not Recovered/Not Resolved]
  - Rash macular [Not Recovered/Not Resolved]
  - Frequent bowel movements [Not Recovered/Not Resolved]
  - Hyperemesis gravidarum [Recovered/Resolved]
  - Impaired work ability [Unknown]
  - Impaired quality of life [Unknown]
  - Back pain [Unknown]
  - Colitis [Not Recovered/Not Resolved]
  - General physical health deterioration [Unknown]
  - Injection site pain [Unknown]
  - Rash pruritic [Not Recovered/Not Resolved]
  - Malaise [Not Recovered/Not Resolved]
  - Crying [Unknown]
  - Eye swelling [Not Recovered/Not Resolved]

NARRATIVE: CASE EVENT DATE: 2018
